FAERS Safety Report 6454621-5 (Version None)
Quarter: 2009Q4

REPORT INFORMATION
  Report Type: 
  Country: None (occurrence: None)
  Receive Date: 20091118
  Receipt Date: 20091103
  Transmission Date: 20100525
  Serious: Yes (Hospitalization)
  Sender: FDA-Public Use
  Company Number: 1-20626645

PATIENT
  Age: 52 Year
  Sex: Female
  Weight: 68.0396 kg

DRUGS (2)
  1. BACTRIM [Suspect]
     Indication: INFECTION PROPHYLAXIS
     Dosage: 1 TABLET, ONCE DAILY, ORAL
     Route: 048
     Dates: start: 20090912, end: 20090922
  2. AVONEX [Suspect]
     Indication: MULTIPLE SCLEROSIS
     Dosage: 30 MCG, ONCE WEEKLY, INTRAMUSCULAR
     Route: 030
     Dates: start: 20080901, end: 20090913

REACTIONS (7)
  - ARTHRALGIA [None]
  - BLOOD PRESSURE DECREASED [None]
  - CHILLS [None]
  - FEELING COLD [None]
  - HEPATITIS [None]
  - HYPERHIDROSIS [None]
  - PYREXIA [None]
